FAERS Safety Report 16948556 (Version 1)
Quarter: 2019Q4

REPORT INFORMATION
  Report Type: Spontaneous
  Country: US (occurrence: US)
  Receive Date: 20191023
  Receipt Date: 20191023
  Transmission Date: 20200122
  Serious: Yes (Other)
  Sender: FDA-Public Use
  Company Number: US-NAPPMUNDI-USA-2019-0147795

PATIENT
  Sex: Female

DRUGS (1)
  1. OXYCODONE HYDROCHLORIDE (SIMILAR TO NDA 22-272) [Suspect]
     Active Substance: OXYCODONE HYDROCHLORIDE
     Indication: PROCEDURAL PAIN
     Dosage: 2 DF, Q4- 6H
     Route: 048

REACTIONS (2)
  - Drug dependence [Recovering/Resolving]
  - Drug abuse [Recovering/Resolving]
